FAERS Safety Report 9055379 (Version 5)
Quarter: 2018Q2

REPORT INFORMATION
  Report Type: Spontaneous
  Country: US (occurrence: US)
  Receive Date: 20130206
  Receipt Date: 20180620
  Transmission Date: 20180711
  Serious: Yes (Hospitalization, Other)
  Sender: FDA-Public Use
  Company Number: US-ROCHE-1187714

PATIENT
  Age: 82 Year
  Sex: Female

DRUGS (26)
  1. HYDROCHLOROTHIAZIDE/TRIAMTERENE [Concomitant]
     Active Substance: HYDROCHLOROTHIAZIDE\TRIAMTERENE
  2. METHYLPREDNISOLONE. [Concomitant]
     Active Substance: METHYLPREDNISOLONE
  3. FOSAMAX [Suspect]
     Active Substance: ALENDRONATE SODIUM
     Indication: OSTEOPOROSIS
     Route: 048
     Dates: start: 199801, end: 200007
  4. ADVAIR HFA [Concomitant]
     Active Substance: FLUTICASONE PROPIONATE\SALMETEROL XINAFOATE
  5. BONIVA [Suspect]
     Active Substance: IBANDRONATE SODIUM
     Indication: OSTEOPOROSIS
     Dosage: FILM COATED
     Route: 048
     Dates: start: 2001
  6. ACTONEL [Suspect]
     Active Substance: RISEDRONATE SODIUM
     Indication: OSTEOPENIA
     Route: 048
     Dates: start: 200402, end: 200903
  7. ACTONEL [Suspect]
     Active Substance: RISEDRONATE SODIUM
     Indication: OSTEOPOROSIS
  8. AMOXICILLIN. [Concomitant]
     Active Substance: AMOXICILLIN
  9. AMBIEN [Concomitant]
     Active Substance: ZOLPIDEM TARTRATE
  10. ZITHROMAX [Concomitant]
     Active Substance: AZITHROMYCIN DIHYDRATE
  11. BENZONATATE. [Concomitant]
     Active Substance: BENZONATATE
  12. FOSAMAX [Suspect]
     Active Substance: ALENDRONATE SODIUM
     Indication: OSTEOPENIA
     Route: 048
     Dates: start: 2001, end: 2011
  13. HYDROCODONE BITARTRATE AND ACETAMINOPHEN [Concomitant]
     Active Substance: ACETAMINOPHEN\HYDROCODONE BITARTRATE
  14. LIPITOR [Concomitant]
     Active Substance: ATORVASTATIN CALCIUM
  15. FERROUS SULFATE. [Concomitant]
     Active Substance: FERROUS SULFATE
  16. BONIVA [Suspect]
     Active Substance: IBANDRONATE SODIUM
     Dosage: FILM COATED
     Route: 048
     Dates: start: 200904, end: 201103
  17. GUAIFENESIN/CODEINE [Concomitant]
     Active Substance: CODEINE PHOSPHATE\GUAIFENESIN
  18. DETROL LA [Concomitant]
     Active Substance: TOLTERODINE TARTRATE
  19. ACETAMINOPHEN AND CODEINE [Concomitant]
     Active Substance: ACETAMINOPHEN\CODEINE PHOSPHATE
  20. MECLIZINE [Concomitant]
     Active Substance: MECLIZINE HYDROCHLORIDE
  21. AZMACORT [Concomitant]
     Active Substance: TRIAMCINOLONE ACETONIDE
  22. ALBUTEROL. [Concomitant]
     Active Substance: ALBUTEROL
  23. PANTOPRAZOLE [Concomitant]
     Active Substance: PANTOPRAZOLE
  24. DILTIAZEM. [Concomitant]
     Active Substance: DILTIAZEM
  25. TEMAZEPAM. [Concomitant]
     Active Substance: TEMAZEPAM
  26. TRAMADOL. [Concomitant]
     Active Substance: TRAMADOL

REACTIONS (10)
  - Stress fracture [Unknown]
  - Femur fracture [Unknown]
  - Emotional distress [Unknown]
  - Comminuted fracture [Unknown]
  - Bone disorder [Unknown]
  - Spinal fracture [Unknown]
  - Rib fracture [Unknown]
  - Lymphoproliferative disorder [Unknown]
  - Low turnover osteopathy [Unknown]
  - Pain [Unknown]

NARRATIVE: CASE EVENT DATE: 2001
